FAERS Safety Report 7020549-5 (Version None)
Quarter: 2010Q3

REPORT INFORMATION
  Report Type: 
  Country: None (occurrence: None)
  Receive Date: 20100929
  Receipt Date: 20100921
  Transmission Date: 20110219
  Serious: Yes (Other)
  Sender: FDA-Public Use
  Company Number: US-JNJCH-2010021736

PATIENT
  Age: 7 Year
  Sex: Male
  Weight: 41.3 kg

DRUGS (1)
  1. CHILDREN'S BENADRYL ALLERGY [Suspect]
     Indication: RASH
     Dosage: TEXT:ONE TEASPOON ONCE
     Route: 048
     Dates: start: 20100820, end: 20100822

REACTIONS (7)
  - EYE SWELLING [None]
  - GAIT DISTURBANCE [None]
  - MUSCULOSKELETAL DISORDER [None]
  - OEDEMA MOUTH [None]
  - OFF LABEL USE [None]
  - PRODUCT QUALITY ISSUE [None]
  - URTICARIA [None]
